FAERS Safety Report 20733082 (Version 1)
Quarter: 2022Q2

REPORT INFORMATION
  Report Type: Spontaneous
  Country: US (occurrence: US)
  Receive Date: 20220421
  Receipt Date: 20220421
  Transmission Date: 20220720
  Serious: Yes (Death, Hospitalization, Other)
  Sender: FDA-Public Use
  Company Number: US-BRISTOL-MYERS SQUIBB COMPANY-2022-021950

PATIENT
  Age: 88 Year
  Sex: Male
  Weight: 85.6 kg

DRUGS (5)
  1. VIDAZA [Suspect]
     Active Substance: AZACITIDINE
     Indication: Myelodysplastic syndrome
     Route: 042
     Dates: start: 20220310, end: 20220310
  2. INQOVI [Suspect]
     Active Substance: CEDAZURIDINE\DECITABINE
     Indication: Myelodysplastic syndrome
     Dosage: 135 MG (35 MG DECITABINE AND 100 MG CEDAZURIDINE), QD 1-5 DAYS EVERY 28 DAY CYCLE
     Route: 065
     Dates: start: 20211005, end: 20220217
  3. IZOFRAN [ONDANSETRON] [Concomitant]
     Indication: Product used for unknown indication
     Route: 065
  4. HYDROXOCOBALAMIN [Concomitant]
     Active Substance: HYDROXOCOBALAMIN
     Indication: Product used for unknown indication
     Route: 065
  5. EXJADE [Concomitant]
     Active Substance: DEFERASIROX
     Indication: Product used for unknown indication
     Route: 065
     Dates: start: 20220101

REACTIONS (2)
  - Disease progression [Fatal]
  - Pancytopenia [Unknown]

NARRATIVE: CASE EVENT DATE: 20220307
